FAERS Safety Report 9154313 (Version 1)
Quarter: 2013Q1

REPORT INFORMATION
  Report Type: Spontaneous
  Country: US (occurrence: None)
  Receive Date: 20130306
  Receipt Date: 20130306
  Transmission Date: 20140127
  Serious: Yes (Other)
  Sender: FDA-Public Use
  Company Number: None

PATIENT
  Age: 75 Year
  Sex: Male
  Weight: 100.6 kg

DRUGS (3)
  1. IPILIMUMAB [Suspect]
     Indication: METASTATIC MALIGNANT MELANOMA
     Dosage: 3WKS D3
     Route: 042
     Dates: start: 20130124
  2. DECADRON [Concomitant]
  3. OMPERAZOLE [Concomitant]

REACTIONS (1)
  - Lipase increased [None]
